FAERS Safety Report 23122597 (Version 1)
Quarter: 2023Q4

REPORT INFORMATION
  Report Type: Spontaneous
  Country: US (occurrence: US)
  Receive Date: 20231030
  Receipt Date: 20231030
  Transmission Date: 20240110
  Serious: Yes (Other)
  Sender: FDA-Public Use
  Company Number: US-UCBSA-2022052518

PATIENT
  Age: 45 Year
  Sex: Female

DRUGS (1)
  1. VIMPAT [Suspect]
     Active Substance: LACOSAMIDE
     Indication: Product used for unknown indication
     Dosage: 50 MILLIGRAM, UNK
     Route: 048
     Dates: start: 20120902

REACTIONS (6)
  - Depression [Unknown]
  - Memory impairment [Unknown]
  - Feeling abnormal [Unknown]
  - Apathy [Unknown]
  - Anxiety [Unknown]
  - Underdose [Unknown]

NARRATIVE: CASE EVENT DATE: 20120902
